FAERS Safety Report 12920624 (Version 2)
Quarter: 2016Q4

REPORT INFORMATION
  Report Type: Spontaneous
  Country: FR (occurrence: FR)
  Receive Date: 20161108
  Receipt Date: 20161214
  Transmission Date: 20170207
  Serious: Yes (Hospitalization)
  Sender: FDA-Public Use
  Company Number: FR-PFIZER INC-2016504755

PATIENT
  Age: 75 Year
  Sex: Male
  Weight: 88 kg

DRUGS (9)
  1. MECIR [Concomitant]
     Active Substance: TAMSULOSIN HYDROCHLORIDE
     Dosage: 0.4 MG, DAILY
  2. MEDROL [Suspect]
     Active Substance: METHYLPREDNISOLONE
     Indication: RENAL CANCER METASTATIC
     Dosage: 32 MG, DAILY
     Route: 048
  3. MEDROL [Suspect]
     Active Substance: METHYLPREDNISOLONE
     Dosage: 32 MG, DAILY
     Route: 048
     Dates: start: 201607, end: 201610
  4. MICARDIS [Concomitant]
     Active Substance: TELMISARTAN
     Dosage: 40 MG, 1X/DAY AT MORNING
  5. JANUMET [Concomitant]
     Active Substance: METFORMIN HYDROCHLORIDE\SITAGLIPTIN PHOSPHATE
     Dosage: 1 DF, 2X/DAY MORNING AND EVENING
  6. MEDROL [Suspect]
     Active Substance: METHYLPREDNISOLONE
     Dosage: 64 MG, DAILY
     Route: 048
     Dates: start: 201606
  7. VOTRIENT [Suspect]
     Active Substance: PAZOPANIB HYDROCHLORIDE
     Indication: RENAL CANCER METASTATIC
     Dosage: UNK
     Route: 048
     Dates: end: 201610
  8. DOLIPRANE [Concomitant]
     Active Substance: ACETAMINOPHEN
  9. VALIUM [Concomitant]
     Active Substance: DIAZEPAM
     Dosage: 10 MG, DAILY

REACTIONS (2)
  - Acute respiratory failure [Unknown]
  - Pneumocystis jirovecii pneumonia [Recovering/Resolving]

NARRATIVE: CASE EVENT DATE: 201610
